FAERS Safety Report 12168965 (Version 2)
Quarter: 2016Q2

REPORT INFORMATION
  Report Type: Spontaneous
  Country: US (occurrence: US)
  Receive Date: 20160310
  Receipt Date: 20160422
  Transmission Date: 20160815
  Serious: No
  Sender: FDA-Public Use
  Company Number: US-ELI_LILLY_AND_COMPANY-US201602006478

PATIENT
  Age: 65 Year
  Sex: Female
  Weight: 122 kg

DRUGS (8)
  1. ADCIRCA [Suspect]
     Active Substance: TADALAFIL
     Indication: PULMONARY ARTERIAL HYPERTENSION
     Dosage: 40 MG, QD
     Route: 048
     Dates: start: 20160215, end: 20160217
  2. ALLOPURINOL. [Concomitant]
     Active Substance: ALLOPURINOL
  3. SPIRONOLACTONE. [Concomitant]
     Active Substance: SPIRONOLACTONE
  4. COUMADIN [Concomitant]
     Active Substance: WARFARIN SODIUM
  5. SIMVASTATIN. [Concomitant]
     Active Substance: SIMVASTATIN
  6. FUROSEMIDE. [Concomitant]
     Active Substance: FUROSEMIDE
  7. LISINOPRIL. [Concomitant]
     Active Substance: LISINOPRIL
  8. METOPROLOL TARTRATE. [Concomitant]
     Active Substance: METOPROLOL TARTRATE

REACTIONS (1)
  - Myalgia [Recovered/Resolved]

NARRATIVE: CASE EVENT DATE: 20160217
